FAERS Safety Report 16131831 (Version 1)
Quarter: 2019Q1

REPORT INFORMATION
  Report Type: Spontaneous
  Country: FR (occurrence: FR)
  Receive Date: 20190329
  Receipt Date: 20190329
  Transmission Date: 20190418
  Serious: Yes (Other)
  Sender: FDA-Public Use
  Company Number: FR-ALEXION PHARMACEUTICALS INC.-A201904441

PATIENT
  Weight: 1.7 kg

DRUGS (1)
  1. SOLIRIS [Suspect]
     Active Substance: ECULIZUMAB
     Indication: ATYPICAL HAEMOLYTIC URAEMIC SYNDROME
     Dosage: 1800 MG, Q2W
     Route: 064

REACTIONS (3)
  - Foetal exposure during pregnancy [Unknown]
  - Growth retardation [Unknown]
  - Low birth weight baby [Unknown]
